FAERS Safety Report 12177412 (Version 2)
Quarter: 2016Q1

REPORT INFORMATION
  Report Type: Spontaneous
  Country: DE (occurrence: DE)
  Receive Date: 20160314
  Receipt Date: 20160324
  Transmission Date: 20160526
  Serious: Yes (Other)
  Sender: FDA-Public Use
  Company Number: DE-PFIZER INC-2016143619

PATIENT
  Age: 20 Year
  Sex: Female

DRUGS (4)
  1. NAPROXEN. [Concomitant]
     Active Substance: NAPROXEN
     Indication: PAIN
     Dosage: 2 DF, UNK (1000 MG TOTAL)
     Route: 048
     Dates: start: 20141125
  2. CYTOTEC [Suspect]
     Active Substance: MISOPROSTOL
     Indication: ABORTION INDUCED
     Dosage: 400 UG, TOTAL (200 UG AT 03:00 PM AND 200 UG AT 04:30 PM) (400 UG TOTAL)
     Route: 048
     Dates: start: 20141125, end: 20141125
  3. VOMACUR [Concomitant]
     Indication: PROPHYLAXIS OF NAUSEA AND VOMITING
     Dosage: 50 MG, UNK
     Route: 048
     Dates: start: 20141125
  4. MIFEGYNE [Suspect]
     Active Substance: MIFEPRISTONE
     Indication: ABORTION INDUCED
     Dosage: 400 MG, TOTAL
     Route: 048
     Dates: start: 20141120, end: 20141120

REACTIONS (4)
  - Abortion spontaneous [Recovered/Resolved]
  - Product use issue [Unknown]
  - Metrorrhagia [Recovered/Resolved]
  - Induced abortion failed [Recovered/Resolved]

NARRATIVE: CASE EVENT DATE: 20141120
